FAERS Safety Report 15724031 (Version 2)
Quarter: 2019Q2

REPORT INFORMATION
  Report Type: Spontaneous
  Country: US (occurrence: US)
  Receive Date: 20181214
  Receipt Date: 20190617
  Transmission Date: 20190711
  Serious: No
  Sender: FDA-Public Use
  Company Number: US-PFIZER INC-2016389474

PATIENT
  Age: 28 Year
  Sex: Female

DRUGS (8)
  1. XANAX [Suspect]
     Active Substance: ALPRAZOLAM
     Indication: ANXIETY
     Dosage: 0.5, 3X/DAY
  2. ZOVIRAX [Concomitant]
     Active Substance: ACYCLOVIR
     Indication: GENITAL HERPES
     Dosage: 400 MG, 2X/DAY
     Dates: start: 1987
  3. PREMARIN [Suspect]
     Active Substance: ESTROGENS, CONJUGATED
     Indication: HYSTERECTOMY
     Dosage: 1.25 MG, DAILY
     Dates: start: 1987
  4. PREMARIN [Suspect]
     Active Substance: ESTROGENS, CONJUGATED
     Indication: MENOPAUSAL DISORDER
     Dosage: 1.25 MG, 1X/DAY
     Route: 048
  5. XANAX [Suspect]
     Active Substance: ALPRAZOLAM
     Indication: PANIC ATTACK
     Dosage: 0.50 MG, AS NEEDED
     Dates: start: 1966
  6. ZOVIRAX [Concomitant]
     Active Substance: ACYCLOVIR
     Dosage: UNK, AS NEEDED
  7. COREG [Concomitant]
     Active Substance: CARVEDILOL
     Indication: ARRHYTHMIA
     Dosage: 3.125 MG, 2X/DAY
     Dates: start: 1990
  8. FLUCONAZOLE. [Concomitant]
     Active Substance: FLUCONAZOLE
     Dosage: UNK
     Dates: start: 2006, end: 2016

REACTIONS (4)
  - Hot flush [Recovered/Resolved]
  - Hyperhidrosis [Not Recovered/Not Resolved]
  - Feeling abnormal [Recovered/Resolved]
  - Headache [Not Recovered/Not Resolved]

NARRATIVE: CASE EVENT DATE: 1987
